FAERS Safety Report 16072368 (Version 1)
Quarter: 2019Q1

REPORT INFORMATION
  Report Type: Spontaneous
  Country: US (occurrence: US)
  Receive Date: 20190314
  Receipt Date: 20190314
  Transmission Date: 20190418
  Serious: Yes (Other)
  Sender: FDA-Public Use
  Company Number: None

PATIENT
  Age: 44 Year
  Sex: Female
  Weight: 58.5 kg

DRUGS (1)
  1. NEOMYCIN AND POLYMYXIN B SULFATES AND HYDROCORTISON OPHTHALMIC SUSPENS [Suspect]
     Active Substance: HYDROCORTISONE\NEOMYCIN SULFATE\POLYMYXIN B SULFATE
     Indication: CONJUNCTIVITIS BACTERIAL
     Dosage: ?          OTHER FREQUENCY:Q6H;?
     Route: 047
     Dates: start: 20190125, end: 20190201

REACTIONS (2)
  - Reaction to preservatives [None]
  - Punctate keratitis [None]

NARRATIVE: CASE EVENT DATE: 20190201
